FAERS Safety Report 19223730 (Version 1)
Quarter: 2021Q2

REPORT INFORMATION
  Report Type: Spontaneous
  Country: US (occurrence: US)
  Receive Date: 20210506
  Receipt Date: 20210506
  Transmission Date: 20210717
  Serious: Yes (Life-Threatening, Hospitalization, Other)
  Sender: FDA-Public Use
  Company Number: US-GLENMARK PHARMACEUTICALS-2021GMK053827

PATIENT
  Age: 53 Year
  Sex: Male

DRUGS (2)
  1. TYLENOL [Concomitant]
     Active Substance: ACETAMINOPHEN
     Indication: PYREXIA
     Dosage: UNK
     Route: 065
  2. LIDOCAINE. [Suspect]
     Active Substance: LIDOCAINE
     Indication: ARTHRALGIA
     Dosage: UNK (FORMULATION: CREAM)
     Route: 061

REACTIONS (4)
  - Methaemoglobinaemia [Recovering/Resolving]
  - Atrioventricular block complete [Recovered/Resolved]
  - Respiratory failure [Recovering/Resolving]
  - Transaminases increased [Recovering/Resolving]
